FAERS Safety Report 8206199-3 (Version None)
Quarter: 2012Q1

REPORT INFORMATION
  Report Type: 
  Country: None (occurrence: None)
  Receive Date: 20120313
  Receipt Date: 20120306
  Transmission Date: 20120608
  Serious: Yes (Other)
  Sender: FDA-Public Use
  Company Number: PHHY2012CA019219

PATIENT
  Sex: Female

DRUGS (7)
  1. ZOLEDRONOC ACID [Suspect]
     Indication: OSTEOPOROSIS
     Dosage: 5 MG, UNK
     Route: 042
     Dates: start: 20100128
  2. ZOLEDRONOC ACID [Suspect]
     Dosage: 5 MG, UNK
     Route: 042
     Dates: start: 20110201
  3. VITAMIN D [Concomitant]
  4. CELEXA [Concomitant]
  5. MULTI-VITAMINS [Concomitant]
  6. ANTIBIOTICS [Concomitant]
     Dosage: UNK UKN, UNK
  7. CALCIUM [Concomitant]

REACTIONS (1)
  - TOOTH INFECTION [None]
